FAERS Safety Report 6609369-0 (Version None)
Quarter: 2010Q1

REPORT INFORMATION
  Report Type: 
  Country: None (occurrence: None)
  Receive Date: 20100224
  Receipt Date: 20100219
  Transmission Date: 20100710
  Serious: Yes (Hospitalization)
  Sender: FDA-Public Use
  Company Number: 20097500

PATIENT
  Age: 13 Year
  Sex: Female

DRUGS (1)
  1. LIORESAL [Suspect]
     Indication: MUSCLE SPASTICITY
     Dosage: MCG, DAILY, INTRATHECAL
     Route: 037

REACTIONS (10)
  - DEVICE MALFUNCTION [None]
  - DYSKINESIA [None]
  - DYSTONIA [None]
  - HAEMATEMESIS [None]
  - HYPOTENSION [None]
  - HYPOTONIA [None]
  - JOINT HYPEREXTENSION [None]
  - MUSCLE SPASMS [None]
  - PAIN [None]
  - TONGUE DISORDER [None]
